FAERS Safety Report 6267944-X (Version None)
Quarter: 2009Q3

REPORT INFORMATION
  Report Type: 
  Country: None (occurrence: None)
  Receive Date: 20090713
  Receipt Date: 20090707
  Transmission Date: 20100115
  Serious: Yes (Other)
  Sender: FDA-Public Use
  Company Number: KV200801149

PATIENT
  Age: 55 Year
  Sex: Male
  Weight: 95.2 kg

DRUGS (14)
  1. ISOSORBIDE MONONITRATE [Suspect]
     Indication: HYPERTENSION
     Dosage: 30 MG, QD, ORAL
     Route: 048
     Dates: start: 20070101
  2. LISINOPRIL [Suspect]
     Dosage: 10 MG, BID, ORAL
     Route: 048
     Dates: end: 20080612
  3. LISINOPRIL [Suspect]
     Dosage: 10 MG, BID, ORAL
     Route: 048
     Dates: start: 20070101
  4. AMLODIPINE [Suspect]
     Dosage: 10 MG, QD, ORAL
     Route: 048
     Dates: end: 20080612
  5. CLONIDINE [Suspect]
     Dosage: 0.2MG, Q12H, ORAL
     Route: 048
     Dates: end: 20080612
  6. LABETALOL HCL [Suspect]
     Dosage: 600 MG, BID, ORAL
     Route: 048
  7. LANTUS [Concomitant]
  8. EPOGEN [Concomitant]
  9. FERROUS SULFATE TAB [Concomitant]
  10. ADVAIR DISKUS 100/50 [Concomitant]
  11. AMARYL [Concomitant]
  12. FORSENOL (LANTHANUM CARBONATE) [Concomitant]
  13. NEPHROCAPS (ASCORBIC ACID, BIOTIN, CYANOCOBALAMIN, FOLIC ACID, NICOTIN [Concomitant]
  14. RENAGEL [Concomitant]

REACTIONS (6)
  - COLD SWEAT [None]
  - DIZZINESS [None]
  - HYPOTENSION [None]
  - PRODUCT QUALITY ISSUE [None]
  - RASH GENERALISED [None]
  - RENAL FAILURE [None]
